FAERS Safety Report 5349524-3 (Version None)
Quarter: 2007Q2

REPORT INFORMATION
  Report Type: 
  Country: None (occurrence: None)
  Receive Date: 20070504
  Receipt Date: 20061027
  Transmission Date: 20071010
  Serious: Yes (Hospitalization)
  Sender: FDA-Public Use
  Company Number: PHEH2006US13496

PATIENT
  Sex: Male

DRUGS (2)
  1. DIOVAN HCT [Suspect]
     Indication: HYPERTENSION
     Dosage: 160MG, VAL, 12.5MG, HCT
     Dates: start: 20031001, end: 20061027
  2. LOTREL (AMLODIPIDINE, BENAZEPRIL) [Suspect]

REACTIONS (1)
  - ANGIOEDEMA [None]
